FAERS Safety Report 4390079-8 (Version None)
Quarter: 2004Q3

REPORT INFORMATION
  Report Type: 
  Country: None (occurrence: None)
  Receive Date: 20040706
  Receipt Date: 20040616
  Transmission Date: 20050211
  Serious: Yes (Other)
  Sender: FDA-Public Use
  Company Number: US-BRISTOL-MYERS SQUIBB COMPANY-12616645

PATIENT
  Age: 62 Year
  Sex: Female

DRUGS (5)
  1. CETUXIMAB [Suspect]
     Indication: COLORECTAL CANCER
     Dosage: INITIATED 13-APR-2004
     Route: 042
     Dates: start: 20040615, end: 20040615
  2. IRINOTECAN [Suspect]
     Indication: COLORECTAL CANCER
     Dosage: INITIATED 13-APR-2004
     Route: 042
     Dates: start: 20040615, end: 20040615
  3. DEPAKOTE [Concomitant]
     Dates: start: 19970101
  4. SYNTHROID [Concomitant]
     Dates: start: 19980810
  5. WELLBUTRIN [Concomitant]
     Dates: start: 19930101

REACTIONS (6)
  - ANOREXIA [None]
  - BLOOD MAGNESIUM DECREASED [None]
  - DIARRHOEA [None]
  - FATIGUE [None]
  - HYPOMAGNESAEMIA [None]
  - WEIGHT DECREASED [None]
